FAERS Safety Report 15003973 (Version 1)
Quarter: 2018Q2

REPORT INFORMATION
  Report Type: Spontaneous
  Country: HU (occurrence: HU)
  Receive Date: 20180613
  Receipt Date: 20180613
  Transmission Date: 20180711
  Serious: Yes (Other)
  Sender: FDA-Public Use
  Company Number: HU-ACCORD-068415

PATIENT
  Sex: Female

DRUGS (1)
  1. CISPLATIN. [Suspect]
     Active Substance: CISPLATIN
     Indication: HEPATOBLASTOMA
     Dosage: 4 CYCLES PRE-OPERATIVE AND 2 CYCLES POST-OPERATIVE

REACTIONS (2)
  - Enzyme level increased [Recovered/Resolved]
  - Off label use [Unknown]
